FAERS Safety Report 13236334 (Version 2)
Quarter: 2019Q1

REPORT INFORMATION
  Report Type: Spontaneous
  Country: US (occurrence: US)
  Receive Date: 20170215
  Receipt Date: 20190206
  Transmission Date: 20190417
  Serious: Yes (Hospitalization)
  Sender: FDA-Public Use
  Company Number: US-EISAI MEDICAL RESEARCH-EC-2017-024745

PATIENT
  Age: 73 Year
  Sex: Male
  Weight: 71 kg

DRUGS (2)
  1. LENVATINIB [Suspect]
     Active Substance: LENVATINIB
     Indication: ANAPLASTIC THYROID CANCER
     Route: 048
     Dates: start: 20161211, end: 20170201
  2. LENVATINIB [Suspect]
     Active Substance: LENVATINIB
     Dosage: UNKNOWN
     Route: 048
     Dates: start: 2017

REACTIONS (1)
  - Pneumothorax spontaneous [Recovering/Resolving]

NARRATIVE: CASE EVENT DATE: 20170201
